FAERS Safety Report 5079854-4 (Version None)
Quarter: 2006Q3

REPORT INFORMATION
  Report Type: 
  Country: None (occurrence: None)
  Receive Date: 20060809
  Receipt Date: 20060727
  Transmission Date: 20061208
  Serious: Yes (Other)
  Sender: FDA-Public Use
  Company Number: 2006092583

PATIENT
  Age: 32 Year
  Sex: Male

DRUGS (4)
  1. VFEND [Suspect]
     Indication: FUNGAL ENDOCARDITIS
     Dosage: 200 MG (200 MG, 1 IN 1 D)
     Dates: start: 20060713, end: 20060727
  2. MICOFUNGIN (MICAFUNGIN) [Concomitant]
  3. AMIODARONE HCL [Concomitant]
  4. DILANTIN [Concomitant]

REACTIONS (6)
  - ALANINE AMINOTRANSFERASE INCREASED [None]
  - ASPARTATE AMINOTRANSFERASE INCREASED [None]
  - BLOOD BICARBONATE DECREASED [None]
  - HYPOVENTILATION [None]
  - LACTIC ACIDOSIS [None]
  - TACHYPNOEA [None]
